FAERS Safety Report 21345795 (Version 1)
Quarter: 2022Q3

REPORT INFORMATION
  Report Type: Spontaneous
  Country: US (occurrence: US)
  Receive Date: 20220916
  Receipt Date: 20220916
  Transmission Date: 20221026
  Serious: No
  Sender: FDA-Public Use
  Company Number: US-PFIZER INC-202201165719

PATIENT
  Age: 36 Year
  Sex: Female

DRUGS (1)
  1. IBRANCE [Suspect]
     Active Substance: PALBOCICLIB
     Indication: Malignant neoplasm progression
     Dosage: 100 MG
     Route: 048
     Dates: start: 20211119

REACTIONS (2)
  - Nausea [Not Recovered/Not Resolved]
  - Oral pain [Unknown]

NARRATIVE: CASE EVENT DATE: 20220701
